FAERS Safety Report 11815414 (Version 1)
Quarter: 2015Q4

REPORT INFORMATION
  Report Type: Spontaneous
  Country: MY (occurrence: MY)
  Receive Date: 20151209
  Receipt Date: 20151209
  Transmission Date: 20160305
  Serious: Yes (Other)
  Sender: FDA-Public Use
  Company Number: MY-PFIZER INC-2015416154

PATIENT
  Age: 4 Year
  Sex: Male

DRUGS (5)
  1. DILANTIN [Suspect]
     Active Substance: PHENYTOIN
     Indication: SEIZURE
     Dosage: 90 MG, DAILY
     Route: 048
  2. AMOXYCILLIN/CLAVULANIC ACID [Concomitant]
     Active Substance: AMOXICILLIN\CLAVULANIC ACID
  3. DILANTIN [Suspect]
     Active Substance: PHENYTOIN
     Indication: SEIZURE
     Dosage: 135 MG, DAILY
     Route: 042
  4. DOMPERIDONE [Concomitant]
     Active Substance: DOMPERIDONE
  5. AMIKACIN [Concomitant]
     Active Substance: AMIKACIN

REACTIONS (2)
  - Urticaria [Recovered/Resolved]
  - Erythema multiforme [Recovered/Resolved]

NARRATIVE: CASE EVENT DATE: 20140701
